FAERS Safety Report 6373535-2 (Version None)
Quarter: 2009Q3

REPORT INFORMATION
  Report Type: 
  Country: None (occurrence: None)
  Receive Date: 20090924
  Receipt Date: 20090220
  Transmission Date: 20100115
  Serious: No
  Sender: FDA-Public Use
  Company Number: US-ASTRAZENECA-2009UW04897

PATIENT
  Age: 50 Year
  Sex: Female
  Weight: 46.7 kg

DRUGS (3)
  1. SEROQUEL [Suspect]
     Indication: ANXIETY
     Route: 048
     Dates: start: 20080601, end: 20080608
  2. VISTARIL [Concomitant]
  3. ATIVAN [Concomitant]

REACTIONS (3)
  - HEADACHE [None]
  - MENSTRUAL DISORDER [None]
  - TENSION [None]
